FAERS Safety Report 25201832 (Version 1)
Quarter: 2025Q2

REPORT INFORMATION
  Report Type: Spontaneous
  Country: PL (occurrence: PL)
  Receive Date: 20250416
  Receipt Date: 20250416
  Transmission Date: 20250717
  Serious: Yes (Other)
  Sender: STRIDES
  Company Number: None

PATIENT
  Age: 32 Year
  Weight: 57 kg

DRUGS (1)
  1. HYDROCORTISONE [Suspect]
     Active Substance: HYDROCORTISONE
     Indication: Addison^s disease
     Route: 065
     Dates: start: 2018

REACTIONS (2)
  - Rectocele [Recovered/Resolved]
  - Rectal prolapse [Recovered/Resolved]

NARRATIVE: CASE EVENT DATE: 20181201
